FAERS Safety Report 24012781 (Version 2)
Quarter: 2024Q3

REPORT INFORMATION
  Report Type: Spontaneous
  Country: US (occurrence: US)
  Receive Date: 20240626
  Receipt Date: 20240708
  Transmission Date: 20241016
  Serious: Yes (Death, Other)
  Sender: BAXTER
  Company Number: US-BAXTER-2024BAX020329

PATIENT
  Sex: Female

DRUGS (1)
  1. SODIUM CHLORIDE [Suspect]
     Active Substance: SODIUM CHLORIDE
     Dosage: 700 ML
     Route: 065
     Dates: start: 20240520

REACTIONS (3)
  - Cardiac arrest [Fatal]
  - Atrial fibrillation [Fatal]
  - Hypervolaemia [Fatal]

NARRATIVE: CASE EVENT DATE: 20240520
